FAERS Safety Report 11244520 (Version 2)
Quarter: 2015Q3

REPORT INFORMATION
  Report Type: Spontaneous
  Country: CN (occurrence: CN)
  Receive Date: 20150707
  Receipt Date: 20150810
  Transmission Date: 20151125
  Serious: Yes (Other)
  Sender: FDA-Public Use
  Company Number: CN-GLAXOSMITHKLINE-CN2015GSK097344

PATIENT
  Age: 35 Year
  Sex: Female

DRUGS (2)
  1. SERETIDE [Suspect]
     Active Substance: FLUTICASONE FUROATE\SALMETEROL XINAFOATE
     Dosage: 1 PUFF(S), PRN
  2. SERETIDE [Suspect]
     Active Substance: FLUTICASONE FUROATE\SALMETEROL XINAFOATE
     Indication: ASTHMA
     Dosage: 1 PUFF(S), UNK
     Route: 055
     Dates: end: 201408

REACTIONS (7)
  - Muscle spasms [Recovered/Resolved]
  - Blood glucose increased [Recovered/Resolved]
  - Abdominal discomfort [Not Recovered/Not Resolved]
  - Gastric haemorrhage [Recovered/Resolved]
  - Tooth disorder [Recovered/Resolved]
  - Treatment noncompliance [Unknown]
  - Arthralgia [Recovered/Resolved]

NARRATIVE: CASE EVENT DATE: 201408
